FAERS Safety Report 5332972-5 (Version None)
Quarter: 2007Q2

REPORT INFORMATION
  Report Type: 
  Country: None (occurrence: None)
  Receive Date: 20070306
  Receipt Date: 20060601
  Transmission Date: 20071010
  Serious: Yes (Other)
  Sender: FDA-Public Use
  Company Number: A03200603741

PATIENT
  Age: 82 Year
  Sex: Female
  Weight: 51.7 kg

DRUGS (2)
  1. PLAVIX [Suspect]
     Indication: RENAL DISORDER
     Dosage: 75 MG QD - ORAL
     Route: 048
     Dates: start: 20060518, end: 20060601
  2. PLAVIX [Suspect]
     Indication: STENT PLACEMENT
     Dosage: 75 MG QD - ORAL
     Route: 048
     Dates: start: 20060518, end: 20060601

REACTIONS (3)
  - EPISTAXIS [None]
  - FATIGUE [None]
  - NAUSEA [None]
